FAERS Safety Report 9062097 (Version 1)
Quarter: 2013Q1

REPORT INFORMATION
  Report Type: Spontaneous
  Country: CH (occurrence: CH)
  Receive Date: 20130129
  Receipt Date: 20130129
  Transmission Date: 20140127
  Serious: Yes (Hospitalization)
  Sender: FDA-Public Use
  Company Number: CH-MYLANLABS-2013S1001292

PATIENT
  Age: 77 Year
  Sex: Female

DRUGS (4)
  1. VERAPAMIL [Suspect]
     Indication: ATRIAL FIBRILLATION
     Dosage: 120MG DAILY
     Route: 065
  2. BISOPROLOL [Suspect]
     Indication: ATRIAL FIBRILLATION
     Dosage: 5MG DAILY; THE INCREASED TO 10MG DAILY
     Route: 065
  3. BISOPROLOL [Suspect]
     Indication: ATRIAL FIBRILLATION
     Dosage: 10MG DAILY
     Route: 065
  4. PHENPROCOUMON [Concomitant]
     Indication: ATRIAL FIBRILLATION
     Route: 065

REACTIONS (5)
  - Cardiogenic shock [Recovering/Resolving]
  - Renal failure acute [Unknown]
  - Metabolic acidosis [Unknown]
  - Coagulopathy [Unknown]
  - Hepatic function abnormal [Unknown]
